FAERS Safety Report 14819935 (Version 4)
Quarter: 2019Q1

REPORT INFORMATION
  Report Type: Report from Study
  Country: GB (occurrence: GB)
  Receive Date: 20180427
  Receipt Date: 20190228
  Transmission Date: 20190417
  Serious: Yes (Hospitalization, Other)
  Sender: FDA-Public Use
  Company Number: GB-PFIZER INC-2018166639

PATIENT
  Age: 50 Year
  Sex: Female

DRUGS (11)
  1. LETROZOLE. [Suspect]
     Active Substance: LETROZOLE
     Indication: HER-2 POSITIVE BREAST CANCER
     Dosage: 2.5 MG, 1X/DAY
     Route: 048
     Dates: start: 20151124
  2. TRASTUZUMAB. [Suspect]
     Active Substance: TRASTUZUMAB
     Indication: HER-2 POSITIVE BREAST CANCER
     Dosage: 900 MG, UNK EVERY THREE WEEKS (LOADING DOSE)
     Route: 042
     Dates: start: 20150722, end: 20150722
  3. DEXAMETHASONE. [Concomitant]
     Active Substance: DEXAMETHASONE
     Dosage: 2 MG, UNK
     Route: 048
     Dates: start: 20150901, end: 20150903
  4. NAPROXEN. [Concomitant]
     Active Substance: NAPROXEN
     Dosage: 1 DF, AS NEEDED
     Route: 048
  5. DOCETAXEL. [Suspect]
     Active Substance: DOCETAXEL
     Indication: HER-2 POSITIVE BREAST CANCER
     Dosage: 160 MG, EVERY 3 WEEKS (ON 04/NOV/2015, SHE COMPLETED PLANNED CYCLES OF DOCETAXEL.)
     Route: 042
     Dates: start: 20150722, end: 20151104
  6. LOPERAMIDE [Concomitant]
     Active Substance: LOPERAMIDE
     Indication: PROPHYLAXIS
     Dosage: 2 MG, UNK (1 OR 2 CAPSULES, MAXIMUM 8 TIMES A DAY)
     Route: 048
     Dates: start: 20150804
  7. PERTUZUMAB. [Suspect]
     Active Substance: PERTUZUMAB
     Indication: HER-2 POSITIVE BREAST CANCER
     Dosage: 840 MG, UNK (LOADING DOSE)
     Route: 042
     Dates: start: 20150722, end: 20150722
  8. BENDROFLUMETHIAZIDE [Concomitant]
     Active Substance: BENDROFLUMETHIAZIDE
     Dosage: 2.5 MG, UNK
     Route: 048
  9. PERTUZUMAB. [Suspect]
     Active Substance: PERTUZUMAB
     Dosage: 420 MG, EVERY 3 WEEKS (MAINTENANCE DOSE)
     Route: 042
     Dates: start: 20150812
  10. TRASTUZUMAB. [Suspect]
     Active Substance: TRASTUZUMAB
     Dosage: 675 MG, EVERY 3 WEEKS (MAINTENANCE DOSE)
     Route: 042
     Dates: start: 20150812
  11. DEXAMETHASONE. [Concomitant]
     Active Substance: DEXAMETHASONE
     Indication: PROPHYLAXIS
     Dosage: 2 MG, UNK (3 DAYS STARTING A DAY BEFORE CHEMOTHERAPY)
     Route: 048
     Dates: start: 20150806

REACTIONS (21)
  - Cellulitis [Recovered/Resolved]
  - Hypokalaemia [Recovered/Resolved]
  - Dyspepsia [Recovered/Resolved]
  - Skin exfoliation [Not Recovered/Not Resolved]
  - Ejection fraction decreased [Not Recovered/Not Resolved]
  - Chest discomfort [Not Recovered/Not Resolved]
  - Neuropathy peripheral [Not Recovered/Not Resolved]
  - Oedema peripheral [Recovered/Resolved]
  - Decreased appetite [Recovered/Resolved]
  - Onychomadesis [Recovered/Resolved]
  - Dysgeusia [Recovered/Resolved]
  - Urinary tract infection [Unknown]
  - Bronchitis [Recovered/Resolved]
  - Laryngitis [Unknown]
  - Erythema [Recovered/Resolved]
  - Nail dystrophy [Recovered/Resolved]
  - Neutropenic sepsis [Recovered/Resolved]
  - Dysphagia [Not Recovered/Not Resolved]
  - Bone marrow failure [Recovered/Resolved]
  - Fatigue [Recovered/Resolved]
  - Myalgia [Recovered/Resolved]

NARRATIVE: CASE EVENT DATE: 20150813
